FAERS Safety Report 4596956-7 (Version None)
Quarter: 2005Q1

REPORT INFORMATION
  Report Type: 
  Country: None (occurrence: None)
  Receive Date: 20050228
  Receipt Date: 20050214
  Transmission Date: 20050727
  Serious: Yes (Other)
  Sender: FDA-Public Use
  Company Number: 2004051426

PATIENT
  Age: 29 Year
  Sex: Female
  Weight: 107.9561 kg

DRUGS (6)
  1. NEURONTIN [Suspect]
     Indication: BIPOLAR DISORDER
     Dosage: 300 MG, ORAL
     Route: 048
     Dates: start: 20011030
  2. XANAX [Suspect]
     Indication: ANXIETY
     Dosage: ORAL
     Route: 048
     Dates: start: 20030908
  3. TIAGABINE HYDROCHLORIDE (TIAGABINE HYDROCHLORIDE) [Suspect]
     Indication: BIPOLAR I DISORDER
     Dosage: 8 MG (4 MG, 2 IN 1 D), ORAL
     Route: 048
     Dates: start: 20040126, end: 20040209
  4. LAMOTRIGINE [Suspect]
     Indication: BIPOLAR DISORDER
     Dosage: 1 D, ORAL
     Route: 048
     Dates: start: 20040106
  5. CITALOPRAM HYDROBROMIDE [Suspect]
     Indication: DEPRESSION
     Dosage: 1 IN 1 D, ORAL
     Route: 048
     Dates: start: 20010101
  6. CLONAZEPAM [Suspect]
     Indication: ANXIETY
     Dosage: 2 IN 1 D, ORAL
     Route: 048
     Dates: start: 20030101

REACTIONS (9)
  - APHASIA [None]
  - DIPLOPIA [None]
  - DIZZINESS [None]
  - DRUG INTERACTION [None]
  - DYSTONIA [None]
  - HALLUCINATION [None]
  - HYPOGLYCAEMIA [None]
  - OEDEMA PERIPHERAL [None]
  - VISION BLURRED [None]
